FAERS Safety Report 7363931-9 (Version None)
Quarter: 2011Q1

REPORT INFORMATION
  Report Type: 
  Country: None (occurrence: None)
  Receive Date: 20110321
  Receipt Date: 20110311
  Transmission Date: 20110831
  Serious: Yes (Death, Hospitalization)
  Sender: FDA-Public Use
  Company Number: CN-ROCHE-765484

PATIENT
  Sex: Male

DRUGS (3)
  1. CYCLOSPORINE [Concomitant]
     Indication: RENAL TRANSPLANT
     Dates: start: 20101119
  2. CORTISONE [Concomitant]
     Indication: RENAL TRANSPLANT
     Dates: start: 20101119
  3. MYCOPHENOLATE MOFETIL [Suspect]
     Indication: RENAL TRANSPLANT
     Route: 048
     Dates: start: 20101119

REACTIONS (2)
  - GENERAL PHYSICAL CONDITION ABNORMAL [None]
  - LUNG INFECTION [None]
